FAERS Safety Report 19449410 (Version 3)
Quarter: 2023Q1

REPORT INFORMATION
  Report Type: Spontaneous
  Country: CA (occurrence: CA)
  Receive Date: 20210622
  Receipt Date: 20230127
  Transmission Date: 20230417
  Serious: Yes (Hospitalization)
  Sender: FDA-Public Use
  Company Number: CA-ORGANON-O2106CAN001919

PATIENT
  Age: 72 Year
  Sex: Female
  Weight: 48 kg

DRUGS (28)
  1. COZAAR [Suspect]
     Active Substance: LOSARTAN POTASSIUM
     Indication: Product used for unknown indication
     Dosage: 25 MILLIGRAM (DAY 7 AND DAY 1)
     Route: 048
     Dates: start: 20210430, end: 20210430
  2. COZAAR [Suspect]
     Active Substance: LOSARTAN POTASSIUM
     Dosage: 25 MILLIGRAM, (DAY 7 AND DAY 1)
     Route: 048
     Dates: start: 20210507, end: 20210507
  3. ENCORAFENIB [Suspect]
     Active Substance: ENCORAFENIB
     Indication: Malignant melanoma
     Dosage: 450 MILLIGRAM, ONCE (CONTINUOUS SINCE DAY 1)
     Route: 048
     Dates: start: 20210507, end: 20210517
  4. ENCORAFENIB [Suspect]
     Active Substance: ENCORAFENIB
     Indication: Product used for unknown indication
     Dosage: 300 MILLIGRAM
     Route: 048
     Dates: start: 20210602
  5. ENCORAFENIB [Suspect]
     Active Substance: ENCORAFENIB
     Indication: Malignant melanoma
  6. BINIMETINIB [Suspect]
     Active Substance: BINIMETINIB
     Indication: Malignant melanoma
     Dosage: 45 MILLIGRAM, 2 EVERY 1 DAYS (CONTINUOUS SINCE DAY 1)
     Route: 048
     Dates: start: 20210507, end: 20210516
  7. BINIMETINIB [Suspect]
     Active Substance: BINIMETINIB
     Indication: Product used for unknown indication
     Dosage: 30 MILLIGRAM, 2 EVERY 1 DAYS
     Route: 048
     Dates: start: 20210602
  8. MIDAZOLAM [Suspect]
     Active Substance: MIDAZOLAM
     Indication: Product used for unknown indication
     Dosage: 2 MILLIGRAM (DAY 7 AND DAY 1)
     Route: 048
     Dates: start: 20210430, end: 20210430
  9. MIDAZOLAM [Suspect]
     Active Substance: MIDAZOLAM
     Dosage: 2 MILLIGRAM (DAY 7 AND DAY 1)
     Route: 048
     Dates: start: 20210507, end: 20210507
  10. OMEPRAZOLE [Suspect]
     Active Substance: OMEPRAZOLE
     Indication: Product used for unknown indication
     Dosage: 20 MILLIGRAM (DAY 7, DAY 1 AND DAY 14)
     Route: 048
     Dates: start: 20210430, end: 20210430
  11. OMEPRAZOLE [Suspect]
     Active Substance: OMEPRAZOLE
     Dosage: 20 MILLIGRAM (DAY 7 DAY 1 AND DAY 14) (DOSAGE FORM: NOT SPECIFIED)
     Route: 048
     Dates: start: 20210507, end: 20210507
  12. DEXTROMETHORPHAN [Suspect]
     Active Substance: DEXTROMETHORPHAN
     Indication: Product used for unknown indication
     Dosage: 15 MILLIGRAM (DAY 7 DAY 1 AND DAY 14)
     Route: 048
     Dates: start: 20210430, end: 20210430
  13. DEXTROMETHORPHAN [Suspect]
     Active Substance: DEXTROMETHORPHAN
     Dosage: 15 MILLIGRAM (DAY 7 DAY 1 AND DAY 14)
     Route: 048
     Dates: start: 20210507, end: 20210507
  14. CAFFEINE [Suspect]
     Active Substance: CAFFEINE
     Indication: Product used for unknown indication
     Dosage: 50 MILLIGRAM (DAY 7, DAY 1 AND DAY 14) (DOSAFE FORM: NOT SPECIFIED)
     Route: 048
     Dates: start: 20210430, end: 20210430
  15. CAFFEINE [Suspect]
     Active Substance: CAFFEINE
     Dosage: 50 MILLIGRAM (DAY 7, DAY 1 AND DAY 14)
     Route: 048
     Dates: start: 20210507, end: 20210507
  16. ASMANEX [Concomitant]
     Active Substance: MOMETASONE FUROATE
     Indication: Seasonal allergy
     Dosage: UNK
     Route: 065
     Dates: start: 2000
  17. FOSAMAX [Concomitant]
     Active Substance: ALENDRONATE SODIUM
     Indication: Osteoporosis
     Dosage: UNK
     Route: 048
     Dates: start: 2007
  18. RAMIPRIL [Concomitant]
     Active Substance: RAMIPRIL
     Indication: Hypertension
     Dosage: UNK
     Route: 065
     Dates: start: 2013
  19. HYDROCHLOROTHIAZIDE [Concomitant]
     Active Substance: HYDROCHLOROTHIAZIDE
     Indication: Hypertension
     Dosage: UNK
     Route: 048
     Dates: start: 2013
  20. ZOVIRAX [Concomitant]
     Active Substance: ACYCLOVIR
     Indication: Oral herpes
     Dosage: UNK
     Route: 065
     Dates: start: 2000
  21. ZOVIRAX [Concomitant]
     Active Substance: ACYCLOVIR
     Indication: Oral herpes
  22. NYSTATIN [Concomitant]
     Active Substance: NYSTATIN
     Indication: Oral candidiasis
     Dosage: UNK, DOSAGE FORM: NOT SPECIFIED
     Route: 065
     Dates: start: 20210410
  23. NITROFURANTOIN [Concomitant]
     Active Substance: NITROFURANTOIN
     Indication: Urinary tract infection
     Dosage: UNK
     Route: 065
     Dates: start: 20210410
  24. HYDROMORPHONE HCL [Concomitant]
     Active Substance: HYDROMORPHONE HYDROCHLORIDE
     Indication: Back pain
     Dosage: UNK
     Route: 065
     Dates: start: 20201007
  25. PREDNISONE [Concomitant]
     Active Substance: PREDNISONE
     Indication: Colitis
     Dosage: UNK
     Route: 048
     Dates: start: 202104
  26. LOPERAMIDE [Concomitant]
     Active Substance: LOPERAMIDE
     Indication: Colitis
     Dosage: UNK
     Route: 048
     Dates: start: 202102
  27. LOPERAMIDE [Concomitant]
     Active Substance: LOPERAMIDE
     Indication: Diarrhoea
     Dosage: UNK
     Route: 065
  28. TRAVOPROST [Concomitant]
     Active Substance: TRAVOPROST
     Indication: Glaucoma
     Dosage: UNK
     Route: 065
     Dates: start: 2015

REACTIONS (2)
  - Chills [Recovered/Resolved]
  - Pyrexia [Recovered/Resolved]

NARRATIVE: CASE EVENT DATE: 20210517
